FAERS Safety Report 21445771 (Version 1)
Quarter: 2022Q4

REPORT INFORMATION
  Report Type: Spontaneous
  Country: US (occurrence: US)
  Receive Date: 20221012
  Receipt Date: 20221012
  Transmission Date: 20230113
  Serious: No
  Sender: FDA-Public Use
  Company Number: US-NOVARTISTESTPH-NVSC2022US229905

PATIENT
  Age: 87 Year
  Sex: Male

DRUGS (2)
  1. XIIDRA [Suspect]
     Active Substance: LIFITEGRAST
     Indication: Product used for unknown indication
     Dosage: UNK
     Route: 065
     Dates: start: 20221007
  2. XIIDRA [Suspect]
     Active Substance: LIFITEGRAST
     Dosage: 1 UNK, Q2H (1 GTT (DROP) BID)
     Route: 047
     Dates: start: 20221007, end: 20221007

REACTIONS (4)
  - Eye irritation [Unknown]
  - Vision blurred [Recovered/Resolved]
  - Lacrimation increased [Unknown]
  - Vision blurred [Recovered/Resolved]

NARRATIVE: CASE EVENT DATE: 20221007
